FAERS Safety Report 23570607 (Version 1)
Quarter: 2024Q1

REPORT INFORMATION
  Report Type: Spontaneous
  Country: US (occurrence: None)
  Receive Date: 20240226
  Receipt Date: 20240226
  Transmission Date: 20240410
  Serious: Yes (Hospitalization)
  Sender: FDA-Public Use
  Company Number: None

PATIENT
  Sex: Female

DRUGS (2)
  1. PULMOZYME [Suspect]
     Active Substance: DORNASE ALFA
     Indication: Infective pulmonary exacerbation of cystic fibrosis
     Dosage: INHALE CONTENTS OF 1 VIAL VIA NEBULIZER 1 TIME A DAY
     Route: 055
     Dates: start: 202005
  2. CAYSTON INH SOLN [Concomitant]

REACTIONS (2)
  - Hospitalisation [None]
  - Condition aggravated [None]
